FAERS Safety Report 4668769-9 (Version None)
Quarter: 2005Q2

REPORT INFORMATION
  Report Type: 
  Country: None (occurrence: None)
  Receive Date: 20050523
  Receipt Date: 20041210
  Transmission Date: 20051028
  Serious: Yes (Other)
  Sender: FDA-Public Use
  Company Number: PHNU2004DE04150

PATIENT
  Age: 64 Year
  Sex: Female
  Weight: 63 kg

DRUGS (5)
  1. ZOMETA [Suspect]
     Indication: METASTASES TO BONE
     Dosage: 4 MG, UNK
     Dates: start: 20030806, end: 20040413
  2. PREDNI-H FOR INJECTION [Suspect]
     Indication: LIPOMATOSIS
     Dosage: 3 TIMES
     Dates: start: 20030801, end: 20040801
  3. XELODA [Concomitant]
     Indication: BREAST CANCER
     Dosage: 1250 MG/MA?
     Dates: start: 20040301, end: 20040301
  4. TRAMADOL HCL [Concomitant]
     Indication: PAIN
     Dosage: AS NEEDED
  5. ARIMIDEX [Concomitant]
     Indication: BREAST CANCER
     Dates: start: 20030801

REACTIONS (6)
  - BONE DEBRIDEMENT [None]
  - IMPAIRED HEALING [None]
  - OSTEOMYELITIS ACUTE [None]
  - OSTEOMYELITIS CHRONIC [None]
  - OSTEONECROSIS [None]
  - TOOTH EXTRACTION [None]
